FAERS Safety Report 9495287 (Version 1)
Quarter: 2013Q3

REPORT INFORMATION
  Report Type: Spontaneous
  Country: JP (occurrence: JP)
  Receive Date: 20130903
  Receipt Date: 20130903
  Transmission Date: 20140515
  Serious: Yes (Other)
  Sender: FDA-Public Use
  Company Number: JP-B.I. PHARMACEUTICALS,INC./RIDGEFIELD-2013-BI-27037YA

PATIENT
  Age: 73 Year
  Sex: Male

DRUGS (3)
  1. HARNAL (TAMSULOSIN) ORODISPERSABLE CR [Suspect]
     Indication: BENIGN PROSTATIC HYPERPLASIA
     Dosage: FORMULATION: ORODISPERSIBLE CR TABLETS
     Route: 048
     Dates: start: 2013, end: 2013
  2. ASACOL [Concomitant]
  3. STERONEMA [Concomitant]

REACTIONS (2)
  - Diarrhoea [Unknown]
  - Melaena [Unknown]
